FAERS Safety Report 6064380-6 (Version None)
Quarter: 2009Q1

REPORT INFORMATION
  Report Type: 
  Country: None (occurrence: None)
  Receive Date: 20090203
  Receipt Date: 20090203
  Transmission Date: 20090719
  Serious: Yes (Hospitalization)
  Sender: FDA-Public Use
  Company Number: None

PATIENT
  Age: 61 Year
  Sex: Male

DRUGS (11)
  1. DIGOXIN [Suspect]
     Indication: ATRIAL FLUTTER
     Dosage: 0.125MG DAILY PO
     Route: 048
     Dates: start: 20080417, end: 20080424
  2. POSACONAZOLE [Suspect]
     Indication: MUCORMYCOSIS
     Dosage: 400MG TWICE DAILY PO
     Route: 048
     Dates: start: 20080314, end: 20080331
  3. HYDROXYCHLOROQUINE SULFATE [Concomitant]
  4. METHYLPREDNISOLONE 4MG TAB [Concomitant]
  5. DILTIAZEM [Concomitant]
  6. AMLODIPINE [Concomitant]
  7. FUROSEMIDE [Concomitant]
  8. ESOMEPRAZOLE MAGNESIUM [Concomitant]
  9. ASPIRIN [Concomitant]
  10. AZATHIAPRINE [Concomitant]
  11. REGULAR INSULIN [Concomitant]

REACTIONS (6)
  - ATRIAL FLUTTER [None]
  - DELIRIUM [None]
  - DRUG INTERACTION [None]
  - DRUG LEVEL INCREASED [None]
  - HEART RATE INCREASED [None]
  - MENTAL STATUS CHANGES [None]
